FAERS Safety Report 5934441-8 (Version None)
Quarter: 2008Q4

REPORT INFORMATION
  Report Type: 
  Country: None (occurrence: None)
  Receive Date: 20081027
  Receipt Date: 20081017
  Transmission Date: 20090506
  Serious: Yes (Hospitalization)
  Sender: FDA-Public Use
  Company Number: CHPA2008US18031

PATIENT
  Age: 75 Year
  Sex: Female

DRUGS (6)
  1. BENEFIBER W/ WHEAT DEXTRIN (NCH) (WHEAT DEXTRIN) POWDER [Suspect]
     Indication: DIVERTICULITIS
     Dosage: 2 TSP, QD, ORAL
     Route: 048
  2. BENEFIBER W/ WHEAT DEXTRIN (NCH) (WHEAT DEXTRIN) POWDER [Suspect]
     Indication: NUTRITIONAL SUPPORT
     Dosage: 2 TSP, QD, ORAL
     Route: 048
  3. PLAVIX [Concomitant]
  4. ASPIRIN [Concomitant]
  5. LOVAZA [Concomitant]
  6. VITAMIN E [Concomitant]

REACTIONS (3)
  - DIARRHOEA [None]
  - HEART VALVE REPLACEMENT [None]
  - INTESTINAL OBSTRUCTION [None]
